FAERS Safety Report 7667952-8 (Version None)
Quarter: 2011Q3

REPORT INFORMATION
  Report Type: 
  Country: None (occurrence: None)
  Receive Date: 20110808
  Receipt Date: 20110801
  Transmission Date: 20111222
  Serious: Yes (Hospitalization)
  Sender: FDA-Public Use
  Company Number: US-BIOGENIDEC-2007BI003252

PATIENT
  Sex: Female

DRUGS (1)
  1. AVONEX [Suspect]
     Indication: MULTIPLE SCLEROSIS
     Route: 030
     Dates: start: 20060419

REACTIONS (8)
  - PARAPLEGIA [None]
  - AMPUTATION [None]
  - ARTERIOSCLEROSIS [None]
  - WEIGHT DECREASED [None]
  - DECREASED APPETITE [None]
  - THROMBOSIS [None]
  - DYSPHAGIA [None]
  - POOR PERIPHERAL CIRCULATION [None]
